FAERS Safety Report 5698099-8 (Version None)
Quarter: 2008Q2

REPORT INFORMATION
  Report Type: 
  Country: None (occurrence: None)
  Receive Date: 20080408
  Receipt Date: 20080402
  Transmission Date: 20081010
  Serious: Yes (Hospitalization, Other)
  Sender: FDA-Public Use
  Company Number: US-BRISTOL-MYERS SQUIBB COMPANY-14119853

PATIENT
  Age: 62 Year
  Sex: Male
  Weight: 62 kg

DRUGS (3)
  1. CETUXIMAB [Suspect]
     Indication: SQUAMOUS CELL CARCINOMA
     Dates: start: 20080320
  2. CISPLATIN [Suspect]
     Indication: SQUAMOUS CELL CARCINOMA
     Dates: start: 20080304
  3. RADIATION THERAPY [Suspect]
     Indication: SQUAMOUS CELL CARCINOMA
     Dates: start: 20080320

REACTIONS (13)
  - BACTERAEMIA [None]
  - BLOOD POTASSIUM DECREASED [None]
  - DEHYDRATION [None]
  - DERMATITIS [None]
  - DYSPHAGIA [None]
  - HAEMOGLOBIN DECREASED [None]
  - HYPOCALCAEMIA [None]
  - LYMPHOPENIA [None]
  - NAUSEA [None]
  - NEUTROPHIL COUNT DECREASED [None]
  - PNEUMONIA [None]
  - STOMATITIS [None]
  - WHITE BLOOD CELL COUNT DECREASED [None]
